FAERS Safety Report 13888984 (Version 1)
Quarter: 2017Q3

REPORT INFORMATION
  Report Type: Spontaneous
  Country: US (occurrence: US)
  Receive Date: 20170822
  Receipt Date: 20170822
  Transmission Date: 20171127
  Serious: Yes (Other)
  Sender: FDA-Public Use
  Company Number: US-ROCHE-1375175

PATIENT
  Age: 14 Year
  Sex: Female
  Weight: 46.1 kg

DRUGS (9)
  1. AMBRISENTAN [Concomitant]
     Active Substance: AMBRISENTAN
     Indication: TAKAYASU^S ARTERITIS
     Route: 048
  2. ACTEMRA [Suspect]
     Active Substance: TOCILIZUMAB
     Indication: TAKAYASU^S ARTERITIS
     Dosage: 3-4 MONTHS
     Route: 042
  3. SILDENAFIL. [Concomitant]
     Active Substance: SILDENAFIL
     Indication: PULMONARY HYPERTENSION
  4. LISINOPRIL. [Concomitant]
     Active Substance: LISINOPRIL
     Indication: TAKAYASU^S ARTERITIS
     Route: 048
  5. CYCLOPHOSPHAMIDE. [Concomitant]
     Active Substance: CYCLOPHOSPHAMIDE
     Indication: TAKAYASU^S ARTERITIS
     Route: 048
  6. PREDNISONE. [Concomitant]
     Active Substance: PREDNISONE
     Indication: TAKAYASU^S ARTERITIS
     Route: 048
  7. LISINOPRIL. [Concomitant]
     Active Substance: LISINOPRIL
     Indication: PULMONARY HYPERTENSION
  8. SILDENAFIL. [Concomitant]
     Active Substance: SILDENAFIL
     Indication: TAKAYASU^S ARTERITIS
     Route: 048
  9. AMBRISENTAN [Concomitant]
     Active Substance: AMBRISENTAN
     Indication: PULMONARY HYPERTENSION

REACTIONS (6)
  - Platelet count decreased [Recovering/Resolving]
  - Abdominal pain [Recovering/Resolving]
  - Upper respiratory tract infection [Recovering/Resolving]
  - Nausea [Recovering/Resolving]
  - Diarrhoea [Recovering/Resolving]
  - Leukopenia [Recovering/Resolving]

NARRATIVE: CASE EVENT DATE: 20140317
